FAERS Safety Report 8612061-4 (Version None)
Quarter: 2012Q3

REPORT INFORMATION
  Report Type: 
  Country: None (occurrence: None)
  Receive Date: 20120822
  Receipt Date: 20120815
  Transmission Date: 20120928
  Serious: Yes (Other)
  Sender: FDA-Public Use
  Company Number: AU-PFIZER INC-2012199103

PATIENT
  Age: 78 Year
  Sex: Male
  Weight: 60.7 kg

DRUGS (4)
  1. DESIPRAMINE HYDROCHLORIDE [Suspect]
     Indication: MANTLE CELL LYMPHOMA
     Dosage: 50 MG, WEEKLY
     Route: 048
     Dates: start: 20120516, end: 20120523
  2. TEMSIROLIMUS [Suspect]
     Indication: MANTLE CELL LYMPHOMA
     Dosage: 75 MG, WEEKLY
     Route: 042
     Dates: start: 20120101, end: 20120101
  3. TEMSIROLIMUS [Suspect]
     Dosage: 25 MG, (UNKNOWN FREQUENCY)
     Route: 042
  4. LORATADINE [Concomitant]
     Indication: PRURITUS
     Dosage: UNK
     Route: 048
     Dates: start: 20120601

REACTIONS (1)
  - PNEUMONITIS [None]
